FAERS Safety Report 23361677 (Version 1)
Quarter: 2024Q1

REPORT INFORMATION
  Report Type: Spontaneous
  Country: US (occurrence: None)
  Receive Date: 20240103
  Receipt Date: 20240103
  Transmission Date: 20240410
  Serious: Yes (Other)
  Sender: FDA-Public Use
  Company Number: None

PATIENT
  Age: 31 Year
  Sex: Male
  Weight: 99 kg

DRUGS (1)
  1. PAROXETINE [Suspect]
     Active Substance: PAROXETINE
     Indication: Generalised anxiety disorder
     Dosage: FREQUENCY : DAILY;?
     Route: 048
     Dates: start: 20220525, end: 20221130

REACTIONS (1)
  - Gambling disorder [None]

NARRATIVE: CASE EVENT DATE: 20221001
